FAERS Safety Report 6725545-0 (Version None)
Quarter: 2010Q2

REPORT INFORMATION
  Report Type: 
  Country: None (occurrence: None)
  Receive Date: 20100514
  Receipt Date: 20100512
  Transmission Date: 20101027
  Serious: Yes (Death, Other)
  Sender: FDA-Public Use
  Company Number: ZA-ROCHE-686164

PATIENT
  Sex: Male
  Weight: 89.8 kg

DRUGS (8)
  1. METHOXY POLYETHYLENE GLYCOL-EPOETIN BETA [Suspect]
     Route: 058
     Dates: start: 20091013, end: 20100113
  2. ASASANTIN RETARD [Concomitant]
     Indication: ANTICOAGULANT THERAPY
     Dosage: FREQUENCY: DAILY.
     Dates: start: 19990101
  3. NEXIUM [Concomitant]
     Indication: ANTACID THERAPY
     Dates: start: 20060101
  4. LIPITOR [Concomitant]
     Dates: start: 20060101
  5. TENORMIN [Concomitant]
     Indication: ANGINA PECTORIS
     Dates: start: 19940101
  6. PLAVIX [Concomitant]
     Indication: ANTICOAGULANT THERAPY
     Route: 048
     Dates: start: 19990101
  7. IMDUR [Concomitant]
     Dosage: INDICATION: VENOUS VASODILATOR.
  8. ZETOMAX [Concomitant]
     Indication: HYPERTENSION
     Dates: start: 19990101

REACTIONS (2)
  - ANAEMIA [None]
  - MYOCARDIAL INFARCTION [None]
